FAERS Safety Report 17776717 (Version 1)
Quarter: 2020Q2

REPORT INFORMATION
  Report Type: Spontaneous
  Country: PR (occurrence: PR)
  Receive Date: 20200513
  Receipt Date: 20200513
  Transmission Date: 20200714
  Serious: Yes (Life-Threatening, Hospitalization)
  Sender: FDA-Public Use
  Company Number: None

PATIENT
  Age: 64 Year
  Sex: Male
  Weight: 103.5 kg

DRUGS (12)
  1. ALLOPURINOL 300MG [Concomitant]
     Active Substance: ALLOPURINOL
  2. GEMFIBROZIL. [Concomitant]
     Active Substance: GEMFIBROZIL
  3. NOVOLIN NOS [Concomitant]
     Active Substance: INSULIN HUMAN
  4. SEVELAMER CARONATE [Concomitant]
  5. TRAMADOL HCL [Concomitant]
     Active Substance: TRAMADOL HYDROCHLORIDE
  6. PROTONIX [Concomitant]
     Active Substance: PANTOPRAZOLE SODIUM
  7. ACETAMINOPHEN. [Concomitant]
     Active Substance: ACETAMINOPHEN
  8. BACLOFEN 20MG [Suspect]
     Active Substance: BACLOFEN
     Indication: ARTHRALGIA
     Dosage: ?          QUANTITY:1 TABLET(S);?
     Route: 048
     Dates: start: 20200501, end: 20200502
  9. GABAPENTIN. [Concomitant]
     Active Substance: GABAPENTIN
  10. TAMSULOSIN [Concomitant]
     Active Substance: TAMSULOSIN
  11. BISACODYL. [Concomitant]
     Active Substance: BISACODYL
  12. MELATONIN [Concomitant]
     Active Substance: MELATONIN

REACTIONS (9)
  - Unresponsive to stimuli [None]
  - Blood pressure increased [None]
  - Disorientation [None]
  - Speech disorder [None]
  - Nausea [None]
  - Mental impairment [None]
  - Dyskinesia [None]
  - Vomiting [None]
  - Heart rate decreased [None]

NARRATIVE: CASE EVENT DATE: 20200502
